FAERS Safety Report 5204301-9 (Version None)
Quarter: 2007Q1

REPORT INFORMATION
  Report Type: 
  Country: None (occurrence: None)
  Receive Date: 20070110
  Receipt Date: 20060206
  Transmission Date: 20070707
  Serious: No
  Sender: FDA-Public Use
  Company Number: US-BRISTOL-MYERS SQUIBB COMPANY-13273313

PATIENT
  Age: 32 Year
  Sex: Female
  Weight: 106 kg

DRUGS (7)
  1. ABILIFY [Suspect]
     Route: 048
     Dates: start: 20060204
  2. NEURONTIN [Concomitant]
  3. TRILEPTAL [Concomitant]
  4. TRAZODONE HCL [Concomitant]
  5. PREVACID [Concomitant]
  6. LOPID [Concomitant]
  7. EFFEXOR XR [Concomitant]

REACTIONS (2)
  - SOMNOLENCE [None]
  - VOMITING [None]
